FAERS Safety Report 7493080-0 (Version None)
Quarter: 2011Q2

REPORT INFORMATION
  Report Type: 
  Country: None (occurrence: None)
  Receive Date: 20110520
  Receipt Date: 20110517
  Transmission Date: 20111010
  Serious: No
  Sender: FDA-Public Use
  Company Number: US-PFIZER INC-US-WYE-H18218110

PATIENT
  Sex: Female

DRUGS (1)
  1. EFFEXOR XR [Suspect]
     Dosage: UNK
     Route: 065

REACTIONS (4)
  - INTENTIONAL DRUG MISUSE [None]
  - VERTIGO [None]
  - FEELING ABNORMAL [None]
  - NAUSEA [None]
